FAERS Safety Report 9125414 (Version 1)
Quarter: 2013Q1

REPORT INFORMATION
  Report Type: Spontaneous
  Country: US (occurrence: US)
  Receive Date: 20130227
  Receipt Date: 20130227
  Transmission Date: 20140127
  Serious: Yes (Other)
  Sender: FDA-Public Use
  Company Number: US-GLAXOSMITHKLINE-A1013457A

PATIENT
  Age: 52 Year
  Sex: Female

DRUGS (5)
  1. LAMICTAL XR [Suspect]
     Indication: COMPLEX PARTIAL SEIZURES
     Route: 048
     Dates: start: 20120411
  2. LAMOTRIGINE [Suspect]
     Indication: COMPLEX PARTIAL SEIZURES
     Dosage: 150MG TWICE PER DAY
     Route: 048
     Dates: end: 20120601
  3. ZETIA [Concomitant]
  4. CITALOPRAM [Concomitant]
  5. ASPIRIN [Concomitant]

REACTIONS (6)
  - Intestinal haemorrhage [Not Recovered/Not Resolved]
  - Rectal haemorrhage [Not Recovered/Not Resolved]
  - Gastrointestinal disorder [Not Recovered/Not Resolved]
  - Rash [Recovering/Resolving]
  - Pruritus generalised [Not Recovered/Not Resolved]
  - Pharyngeal oedema [Recovering/Resolving]
